FAERS Safety Report 26180860 (Version 1)
Quarter: 2025Q4

REPORT INFORMATION
  Report Type: Spontaneous
  Country: TW (occurrence: TW)
  Receive Date: 20251221
  Receipt Date: 20251221
  Transmission Date: 20260118
  Serious: Yes (Hospitalization)
  Sender: TEVA
  Company Number: TW-TEVA-VS-3403103

PATIENT
  Age: 65 Year
  Sex: Female

DRUGS (1)
  1. AJOVY [Suspect]
     Active Substance: FREMANEZUMAB-VFRM
     Indication: Product used for unknown indication
     Route: 058
     Dates: start: 20251118

REACTIONS (3)
  - Oedema due to renal disease [Unknown]
  - Pyrexia [Unknown]
  - Ureteral stent insertion [Unknown]

NARRATIVE: CASE EVENT DATE: 20250101
